FAERS Safety Report 7270916-X (Version None)
Quarter: 2011Q1

REPORT INFORMATION
  Report Type: 
  Country: None (occurrence: None)
  Receive Date: 20110202
  Receipt Date: 20110124
  Transmission Date: 20110831
  Serious: Yes (Other)
  Sender: FDA-Public Use
  Company Number: US-ASTRAZENECA-2010SE51674

PATIENT
  Age: 54 Year
  Sex: Male

DRUGS (1)
  1. NEXIUM [Suspect]
     Route: 048

REACTIONS (6)
  - HEAD INJURY [None]
  - BALANCE DISORDER [None]
  - SUBDURAL HAEMATOMA [None]
  - COGNITIVE DISORDER [None]
  - AMNESIA [None]
  - EYE MOVEMENT DISORDER [None]
